FAERS Safety Report 7903093 (Version 2)
Quarter: 2014Q2

REPORT INFORMATION
  Report Type: Spontaneous
  Country: ZA (occurrence: ZA)
  Receive Date: 20110418
  Receipt Date: 20140616
  Transmission Date: 20141212
  Serious: Yes (Death, Other)
  Sender: FDA-Public Use
  Company Number: ZA-BRISTOL-MYERS SQUIBB COMPANY-15665318

PATIENT
  Age: 1 Day
  Sex: Male

DRUGS (4)
  1. STOCRIN TABS [Suspect]
     Dosage: FILM COATED TABS
     Route: 064
     Dates: end: 20100913
  2. TRUVADA [Suspect]
     Route: 064
  3. EMTRICITABINE [Concomitant]
  4. TENOFOVIR DISOPROXIL FUMARATE [Concomitant]

REACTIONS (5)
  - Death [Fatal]
  - Small for dates baby [Unknown]
  - Low birth weight baby [Unknown]
  - Premature baby [Unknown]
  - Foetal exposure during pregnancy [Unknown]
